FAERS Safety Report 9302988 (Version 1)
Quarter: 2013Q2

REPORT INFORMATION
  Report Type: Spontaneous
  Country: DK (occurrence: FR)
  Receive Date: 20130522
  Receipt Date: 20130522
  Transmission Date: 20140414
  Serious: Yes (Hospitalization)
  Sender: FDA-Public Use
  Company Number: FR-FRI-1000045263

PATIENT
  Age: 41 Year
  Sex: Male

DRUGS (10)
  1. ESCITALOPRAM [Suspect]
     Indication: DEPRESSION
     Dosage: OVERDOSE: 60 TABLETS
     Route: 048
  2. ZOPICLONE [Suspect]
     Indication: INSOMNIA
     Route: 048
  3. TERCIAN [Suspect]
     Indication: PSYCHOTIC DISORDER
     Route: 048
  4. DEPAMIDE [Concomitant]
  5. DEROXAT [Concomitant]
  6. INEXIUM [Concomitant]
  7. VALIUM [Concomitant]
  8. SULFARLEM [Concomitant]
  9. NOCTAMIDE [Concomitant]
  10. RISPERDAL [Concomitant]

REACTIONS (3)
  - Coma [Recovered/Resolved]
  - Oxygen saturation decreased [Recovered/Resolved]
  - Overdose [Recovered/Resolved]
